FAERS Safety Report 9369600 (Version 1)
Quarter: 2013Q2

REPORT INFORMATION
  Report Type: Spontaneous
  Country: US (occurrence: US)
  Receive Date: 20130626
  Receipt Date: 20130626
  Transmission Date: 20140414
  Serious: No
  Sender: FDA-Public Use
  Company Number: US-MYLANLABS-2012S1023787

PATIENT
  Age: 71 Year
  Sex: Female

DRUGS (21)
  1. PERFOROMIST (FORMOTEROL FUMARATE) INHALATION SOLUTION [Suspect]
     Indication: CHRONIC OBSTRUCTIVE PULMONARY DISEASE
     Route: 055
     Dates: start: 201210, end: 2012
  2. PERFOROMIST (FORMOTEROL FUMARATE) INHALATION SOLUTION [Suspect]
     Indication: ASTHMA
     Route: 055
     Dates: start: 201210, end: 2012
  3. BUDESONIDE [Suspect]
     Indication: CHRONIC OBSTRUCTIVE PULMONARY DISEASE
     Route: 055
     Dates: start: 201210, end: 2012
  4. BUDESONIDE [Suspect]
     Indication: ASTHMA
     Route: 055
     Dates: start: 201210, end: 2012
  5. BUDESONIDE [Suspect]
     Indication: OFF LABEL USE
     Route: 055
     Dates: start: 201210, end: 2012
  6. SIMVASTATIN [Suspect]
     Indication: BLOOD CHOLESTEROL INCREASED
     Route: 048
     Dates: start: 201209, end: 201210
  7. BOTOX [Concomitant]
     Dosage: 2 WEEKS AGO INTO BLADDER (ONE TIME DOSE) DOSE UNIT:100 UNKNOWN
     Dates: start: 201211, end: 201211
  8. SINEMET [Concomitant]
     Indication: PARKINSON^S DISEASE
     Dosage: 25MG/100MG
  9. MIRAPEX [Concomitant]
     Indication: PARKINSON^S DISEASE
     Route: 048
  10. BISOPROLOL [Concomitant]
     Indication: BLOOD PRESSURE INCREASED
     Dosage: TAKES 1/2 5MG TABLET
     Route: 048
  11. LISINOPRIL [Concomitant]
     Indication: BLOOD PRESSURE INCREASED
     Route: 048
  12. ZOLOFT [Concomitant]
     Indication: INSOMNIA
     Route: 048
  13. MOBIC [Concomitant]
     Route: 048
  14. CALCIUM [Concomitant]
     Route: 048
  15. ASPIRIN [Concomitant]
     Indication: PROPHYLAXIS
     Route: 048
  16. MULTIVITAMIN [Concomitant]
     Route: 048
  17. PRILOSEC [Concomitant]
     Dosage: TAKES 2 20MG IN AM AND 1 IN THE EVENING PRN
     Route: 048
  18. BACTRIM [Concomitant]
     Indication: SINUSITIS
     Route: 048
  19. AMOXICILLIN [Concomitant]
     Indication: SINUSITIS
     Route: 048
  20. TUMS [Concomitant]
     Indication: GASTROOESOPHAGEAL REFLUX DISEASE
     Route: 048
  21. FOSAMAX [Concomitant]

REACTIONS (3)
  - Asthenia [Not Recovered/Not Resolved]
  - Musculoskeletal stiffness [Not Recovered/Not Resolved]
  - Chest pain [Recovered/Resolved]
